FAERS Safety Report 6473240-8 (Version None)
Quarter: 2009Q4

REPORT INFORMATION
  Report Type: 
  Country: None (occurrence: None)
  Receive Date: 20091204
  Receipt Date: 20080429
  Transmission Date: 20100525
  Serious: Yes (Congenital Anomaly)
  Sender: FDA-Public Use
  Company Number: FR-ELI_LILLY_AND_COMPANY-FR200804007073

PATIENT

DRUGS (5)
  1. ZYPREXA [Suspect]
     Indication: MENTAL DISORDER
     Dosage: 1 D/F, DAILY (1/D)
     Route: 064
     Dates: start: 20070801
  2. URBANYL [Concomitant]
     Dosage: 10 MG, DAILY (1/D)
     Route: 064
  3. LAMICTAL [Concomitant]
     Indication: EPILEPSY
     Dosage: 100 MG, DAILY (1/D)
     Route: 064
  4. VALIUM [Concomitant]
     Indication: EPILEPSY
     Route: 064
  5. DI-HYDAN [Concomitant]
     Indication: EPILEPSY
     Dosage: 300 MG, UNK
     Route: 064

REACTIONS (2)
  - CEREBRAL VENTRICLE DILATATION [None]
  - DRUG EXPOSURE DURING PREGNANCY [None]
